FAERS Safety Report 23441858 (Version 1)
Quarter: 2024Q1

REPORT INFORMATION
  Report Type: Spontaneous
  Country: CA (occurrence: None)
  Receive Date: 20240125
  Receipt Date: 20240125
  Transmission Date: 20240409
  Serious: Yes (Other)
  Sender: FDA-Public Use
  Company Number: CA-PFIZER INC-202400022581

PATIENT
  Age: 31 Year
  Sex: Female

DRUGS (7)
  1. METHOTREXATE [Suspect]
     Active Substance: METHOTREXATE
     Indication: Crohn^s disease
  2. IMURAN [Suspect]
     Active Substance: AZATHIOPRINE
     Indication: Crohn^s disease
  3. IMURAN [Suspect]
     Active Substance: AZATHIOPRINE
  4. ENTOCORT [Concomitant]
     Active Substance: BUDESONIDE
  5. HUMIRA [Concomitant]
     Active Substance: ADALIMUMAB
  6. PREDNISONE [Concomitant]
     Active Substance: PREDNISONE
  7. SKYRIZI [Concomitant]
     Active Substance: RISANKIZUMAB-RZAA

REACTIONS (4)
  - Crohn^s disease [Unknown]
  - Rash [Unknown]
  - Product use in unapproved indication [Unknown]
  - Drug ineffective for unapproved indication [Unknown]
